FAERS Safety Report 17859614 (Version 1)
Quarter: 2020Q2

REPORT INFORMATION
  Report Type: Spontaneous
  Country: US (occurrence: US)
  Receive Date: 20200603
  Receipt Date: 20200603
  Transmission Date: 20200714
  Serious: Yes (Hospitalization)
  Sender: FDA-Public Use
  Company Number: None

PATIENT
  Age: 63 Year
  Sex: Male

DRUGS (7)
  1. IEFLUNOMIDE [Concomitant]
  2. SILDENAFIL. [Concomitant]
     Active Substance: SILDENAFIL
  3. ENBREL [Suspect]
     Active Substance: ETANERCEPT
     Indication: RHEUMATOID ARTHRITIS
     Route: 058
     Dates: start: 20200225
  4. DICLOFENAC [Concomitant]
     Active Substance: DICLOFENAC
  5. METHOTREXATE. [Concomitant]
     Active Substance: METHOTREXATE
  6. DOK [Concomitant]
     Active Substance: DOCUSATE SODIUM
  7. FOLIC ACID. [Concomitant]
     Active Substance: FOLIC ACID

REACTIONS (2)
  - Colon operation [None]
  - Therapy interrupted [None]

NARRATIVE: CASE EVENT DATE: 20200504
